FAERS Safety Report 9853821 (Version 1)
Quarter: 2014Q1

REPORT INFORMATION
  Report Type: Spontaneous
  Country: US (occurrence: US)
  Receive Date: 20140129
  Receipt Date: 20140129
  Transmission Date: 20141002
  Serious: Yes (Other)
  Sender: FDA-Public Use
  Company Number: US-GLAXOSMITHKLINE-A1048352A

PATIENT
  Age: 16 Year
  Sex: Female
  Weight: 93.2 kg

DRUGS (5)
  1. WELLBUTRIN [Suspect]
     Indication: DEPRESSION
     Dosage: 300MG PER DAY
     Route: 048
  2. QSYMIA (PHENTERMINE AND TOPIRAMATE EXTENDED RELEASE) [Suspect]
     Indication: PRODUCT USED FOR UNKNOWN INDICATION
     Route: 048
     Dates: start: 20131004, end: 20131017
  3. PROZAC [Concomitant]
  4. PENTASA [Concomitant]
  5. VITAMIN D [Concomitant]

REACTIONS (1)
  - Convulsion [Recovering/Resolving]
